FAERS Safety Report 8845588 (Version 1)
Quarter: 2012Q4

REPORT INFORMATION
  Report Type: 
  Country: US (occurrence: US)
  Receive Date: 20121017
  Receipt Date: 20121017
  Transmission Date: 20130627
  Serious: Yes (Hospitalization, Other)
  Sender: FDA-Public Use
  Company Number: US-009507513-0403USA00626

PATIENT

DRUGS (19)
  1. FOSAMAX [Suspect]
     Indication: OSTEOPOROSIS
     Dosage: 10 mg, qd
     Route: 048
     Dates: start: 1998
  2. FOSAMAX [Suspect]
     Indication: OSTEOPENIA
     Dosage: 5 mg, UNK
     Route: 048
     Dates: start: 199903, end: 2000
  3. FOSAMAX [Suspect]
     Dosage: 70 mg, QW
     Route: 048
     Dates: start: 2000, end: 200403
  4. FOSAMAX [Suspect]
     Dosage: 35 mg, QW
     Route: 048
  5. ESTROGENS (UNSPECIFIED) [Concomitant]
     Dates: start: 1987, end: 200210
  6. CALCIUM (UNSPECIFIED) [Concomitant]
     Dates: start: 2003
  7. VITAMIN D (UNSPECIFIED) [Concomitant]
  8. SYNTHROID [Concomitant]
     Dosage: 88 ?g, qd
  9. ASPIRIN [Concomitant]
     Dosage: 81 mg, qd
  10. DYAZIDE [Concomitant]
     Indication: HYPERTENSION
     Dosage: UNK UNK, BIW
  11. DYAZIDE [Concomitant]
     Indication: OEDEMA
  12. AMBIEN [Concomitant]
  13. PRAVACHOL [Concomitant]
     Indication: HYPERCHOLESTEROLAEMIA
     Dosage: 20 mg, qd
  14. LEXAPRO [Concomitant]
     Dosage: 20 mg, qd
  15. BEXTRA (VALDECOXIB) [Concomitant]
     Indication: OSTEOARTHRITIS
     Dosage: 20 mg, qd
  16. ACETAMINOPHEN (+) HYDROCODONE BITARTRATE [Concomitant]
     Dosage: 7.5/500
  17. LESCOL XL [Concomitant]
     Indication: HYPERCHOLESTEROLAEMIA
     Dosage: 40 mg, hs
  18. ZETIA [Concomitant]
     Indication: HYPERCHOLESTEROLAEMIA
     Dosage: 5 mg, qd
  19. DIOVAN HCT [Concomitant]
     Indication: HYPERTENSION

REACTIONS (32)
  - Low turnover osteopathy [Recovered/Resolved]
  - Fracture delayed union [Recovered/Resolved]
  - Breast cancer [Unknown]
  - Metabolic disorder [Unknown]
  - Back disorder [Unknown]
  - Femur fracture [Recovered/Resolved]
  - Hypoparathyroidism [Unknown]
  - Haemorrhoids [Unknown]
  - Carpal tunnel syndrome [Unknown]
  - Depression [Unknown]
  - Anaemia postoperative [Recovering/Resolving]
  - Intervertebral disc degeneration [Unknown]
  - Spinal osteoarthritis [Unknown]
  - Nephrolithiasis [Unknown]
  - Vertigo positional [Unknown]
  - Goitre [Unknown]
  - Hypothyroidism [Unknown]
  - Barotrauma [Unknown]
  - Barotrauma [Unknown]
  - Tenderness [Unknown]
  - Haematuria [Unknown]
  - Faeces discoloured [Unknown]
  - Oropharyngeal pain [Unknown]
  - Carotid artery stenosis [Unknown]
  - Intervertebral disc disorder [Unknown]
  - Bursitis [Unknown]
  - Bronchitis [Unknown]
  - Anxiety [Unknown]
  - Muscle spasms [Unknown]
  - Myalgia [Unknown]
  - Constipation [Unknown]
  - Gastrooesophageal reflux disease [Unknown]
